FAERS Safety Report 23242055 (Version 3)
Quarter: 2024Q4

REPORT INFORMATION
  Report Type: Spontaneous
  Country: PT (occurrence: PT)
  Receive Date: 20231129
  Receipt Date: 20241217
  Transmission Date: 20250114
  Serious: Yes (Hospitalization, Other)
  Sender: FRESENIUS KABI
  Company Number: PT-009507513-2311PRT006452

PATIENT
  Age: 46 Year
  Sex: Female

DRUGS (4)
  1. CARBOPLATIN [Suspect]
     Active Substance: CARBOPLATIN
     Indication: Triple negative breast cancer
     Dosage: AUC 2, QW?AREA UNDER THE CURVE (AUC) 2, WEEKLY (ALSO REPORTED AS X12)?THERAPY START DATE-04-OCT-2022
     Dates: end: 20230221
  2. PACLITAXEL [Suspect]
     Active Substance: PACLITAXEL
     Indication: Triple negative breast cancer
     Dosage: 80 MILLIGRAM/SQ. METER, QW?THERAPY START DATE-04-OCT-2022
     Dates: end: 20230221
  3. PEMBROLIZUMAB [Suspect]
     Active Substance: PEMBROLIZUMAB
     Indication: Triple negative breast cancer
     Dosage: FORM: SOLUTION FOR INJECTION?200 MILLIGRAM, Q3W?THERAPY START DATE-04-OCT-2022
     Dates: end: 20230221
  4. IRBESARTAN [Concomitant]
     Active Substance: IRBESARTAN
     Indication: Product used for unknown indication
     Dosage: 150 MG

REACTIONS (12)
  - Immune-mediated hepatitis [Recovered/Resolved]
  - Pseudomonas infection [Recovered/Resolved]
  - Skin toxicity [Unknown]
  - Breast tumour excision [Unknown]
  - Specific gravity urine increased [Unknown]
  - Deficiency of bile secretion [Unknown]
  - Fatigue [Unknown]
  - Choluria [Unknown]
  - Jaundice [Unknown]
  - Nausea [Unknown]
  - Polydipsia [Unknown]
  - Catheter site infection [Recovered/Resolved]

NARRATIVE: CASE EVENT DATE: 20220101
